FAERS Safety Report 10257385 (Version 1)
Quarter: 2014Q2

REPORT INFORMATION
  Report Type: Spontaneous
  Country: US (occurrence: None)
  Receive Date: 20140620
  Receipt Date: 20140620
  Transmission Date: 20141212
  Serious: Yes (Other)
  Sender: FDA-Public Use
  Company Number: 2014US00541

PATIENT
  Age: 67 Year
  Sex: Female

DRUGS (1)
  1. LEVOFLOXACIN [Suspect]
     Indication: ENDOPHTHALMITIS
     Dosage: INTRAVENOUS FOR 2 WEEKS
     Route: 042

REACTIONS (3)
  - Vanishing bile duct syndrome [None]
  - Cholestasis [None]
  - Drug-induced liver injury [None]
